FAERS Safety Report 11249735 (Version 1)
Quarter: 2015Q3

REPORT INFORMATION
  Report Type: Spontaneous
  Country: US (occurrence: US)
  Receive Date: 20150708
  Receipt Date: 20150708
  Transmission Date: 20151125
  Serious: Yes (Hospitalization)
  Sender: FDA-Public Use
  Company Number: US-ELI_LILLY_AND_COMPANY-US200906003431

PATIENT
  Age: 65 Year
  Sex: Female

DRUGS (3)
  1. TAXOTERE [Concomitant]
     Active Substance: DOCETAXEL
     Indication: SARCOMA UTERUS
     Dosage: 100 MG/M2, OTHER; DAY 8 ONLY
     Route: 042
     Dates: end: 20090606
  2. GEMZAR [Suspect]
     Active Substance: GEMCITABINE HYDROCHLORIDE
     Indication: SARCOMA UTERUS
     Dosage: 900 MG/M2, OTHER; DAYS 1 AND 8
     Route: 042
     Dates: start: 20090527, end: 20090603
  3. NEUPOGEN [Concomitant]
     Active Substance: FILGRASTIM
     Indication: SARCOMA UTERUS
     Dosage: OTHER; C 1 X 8 DAYS

REACTIONS (2)
  - Febrile neutropenia [Not Recovered/Not Resolved]
  - Off label use [Unknown]

NARRATIVE: CASE EVENT DATE: 20090527
